FAERS Safety Report 10384547 (Version 3)
Quarter: 2014Q4

REPORT INFORMATION
  Report Type: Report from Study
  Country: JP (occurrence: JP)
  Receive Date: 20140814
  Receipt Date: 20141003
  Transmission Date: 20150528
  Serious: Yes (Other)
  Sender: FDA-Public Use
  Company Number: JP-009507513-1405JPN012687

PATIENT
  Age: 82 Year
  Sex: Male

DRUGS (57)
  1. FOSAPREPITANT DIMEGLUMINE [Suspect]
     Active Substance: FOSAPREPITANT DIMEGLUMINE
     Dosage: 150 MG, QD
     Route: 041
     Dates: start: 20140220, end: 20140220
  2. DEXART [Concomitant]
     Active Substance: DEXAMETHASONE SODIUM PHOSPHATE
     Dosage: 8.25 MG, UNK
     Dates: start: 20131126, end: 20131126
  3. DEXART [Concomitant]
     Active Substance: DEXAMETHASONE SODIUM PHOSPHATE
     Dosage: 3.30 MG, UNK
     Dates: start: 20130925, end: 20130925
  4. DEXART [Concomitant]
     Active Substance: DEXAMETHASONE SODIUM PHOSPHATE
     Dosage: 3.30 MG, UNK
     Dates: start: 20140221, end: 20140223
  5. LASIX [Concomitant]
     Active Substance: FUROSEMIDE
     Dosage: UNK
     Dates: start: 20131126, end: 20131128
  6. ALOXI [Concomitant]
     Active Substance: PALONOSETRON HYDROCHLORIDE
     Dosage: UNK
     Dates: start: 20130924, end: 20130924
  7. DEXART [Concomitant]
     Active Substance: DEXAMETHASONE SODIUM PHOSPHATE
     Dosage: 8.25 MG, UNK
     Dates: start: 20130924, end: 20130924
  8. DEXART [Concomitant]
     Active Substance: DEXAMETHASONE SODIUM PHOSPHATE
     Dosage: 8.25 MG, UNK
     Dates: start: 20140220, end: 20140220
  9. DEXART [Concomitant]
     Active Substance: DEXAMETHASONE SODIUM PHOSPHATE
     Dosage: 8.25 MG, UNK
     Dates: start: 20140327, end: 20140327
  10. FOSAPREPITANT DIMEGLUMINE [Suspect]
     Active Substance: FOSAPREPITANT DIMEGLUMINE
     Dosage: 150 MG, QD
     Route: 041
     Dates: start: 20140123, end: 20140123
  11. BRIPLATIN [Suspect]
     Active Substance: CISPLATIN
     Dosage: 55 MG, QD
     Route: 042
     Dates: start: 20140220, end: 20140220
  12. BRIPLATIN [Suspect]
     Active Substance: CISPLATIN
     Dosage: 55 MG, QD
     Route: 042
     Dates: start: 20140327, end: 20140327
  13. IRINOTECAN HYDROCHLORIDE. [Suspect]
     Active Substance: IRINOTECAN HYDROCHLORIDE
     Dosage: 65 MG, QD
     Route: 042
     Dates: start: 20131029, end: 20131029
  14. CISPLATIN. [Concomitant]
     Active Substance: CISPLATIN
     Dosage: UNK
     Dates: start: 20130924, end: 20130924
  15. ALOXI [Concomitant]
     Active Substance: PALONOSETRON HYDROCHLORIDE
     Dosage: UNK
     Dates: start: 20131226, end: 20131226
  16. DEXART [Concomitant]
     Active Substance: DEXAMETHASONE SODIUM PHOSPHATE
     Dosage: 3.30 MG, UNK
     Dates: start: 20131127, end: 20131128
  17. DEXART [Concomitant]
     Active Substance: DEXAMETHASONE SODIUM PHOSPHATE
     Dosage: 3.30 MG, UNK
     Dates: start: 20131227, end: 20131228
  18. LASIX [Concomitant]
     Active Substance: FUROSEMIDE
     Dosage: UNK
     Dates: start: 20140327, end: 20140329
  19. FOSAPREPITANT DIMEGLUMINE [Suspect]
     Active Substance: FOSAPREPITANT DIMEGLUMINE
     Dosage: 150 MG, QD
     Route: 041
     Dates: start: 20131226, end: 20131226
  20. FOSAPREPITANT DIMEGLUMINE [Suspect]
     Active Substance: FOSAPREPITANT DIMEGLUMINE
     Dosage: 150 MG, QD
     Route: 041
     Dates: start: 20140327, end: 20140327
  21. BRIPLATIN [Suspect]
     Active Substance: CISPLATIN
     Dosage: 65 MG, QD
     Route: 042
     Dates: start: 20131029, end: 20131029
  22. BRIPLATIN [Suspect]
     Active Substance: CISPLATIN
     Dosage: 55 MG, QD
     Route: 042
     Dates: start: 20131126, end: 20131126
  23. IRINOTECAN HYDROCHLORIDE. [Suspect]
     Active Substance: IRINOTECAN HYDROCHLORIDE
     Dosage: 55 MG, QD
     Route: 042
     Dates: start: 20131126, end: 20131126
  24. ALOXI [Concomitant]
     Active Substance: PALONOSETRON HYDROCHLORIDE
     Dosage: UNK
     Dates: start: 20131029, end: 20131029
  25. ALOXI [Concomitant]
     Active Substance: PALONOSETRON HYDROCHLORIDE
     Dosage: UNK
     Dates: start: 20131126, end: 20131126
  26. DEXART [Concomitant]
     Active Substance: DEXAMETHASONE SODIUM PHOSPHATE
     Dosage: 8.25 MG, UNK
     Dates: start: 20140123, end: 20140123
  27. DEXART [Concomitant]
     Active Substance: DEXAMETHASONE SODIUM PHOSPHATE
     Dosage: 3.30 MG, UNK
     Dates: start: 20140124, end: 20140125
  28. LASIX [Concomitant]
     Active Substance: FUROSEMIDE
     Dosage: UNK
     Dates: start: 20131029, end: 20131031
  29. XELODA [Concomitant]
     Active Substance: CAPECITABINE
     Dosage: UNK
     Dates: start: 20130924, end: 20131004
  30. ALOXI [Concomitant]
     Active Substance: PALONOSETRON HYDROCHLORIDE
     Dosage: UNK
     Dates: start: 20140123, end: 20140123
  31. ALOXI [Concomitant]
     Active Substance: PALONOSETRON HYDROCHLORIDE
     Dosage: UNK
     Dates: start: 20140424, end: 20140424
  32. LASIX [Concomitant]
     Active Substance: FUROSEMIDE
     Dosage: UNK
     Dates: start: 20140220, end: 20140223
  33. FOSAPREPITANT DIMEGLUMINE [Suspect]
     Active Substance: FOSAPREPITANT DIMEGLUMINE
     Dosage: 150 MG, QD
     Route: 041
     Dates: start: 20131029, end: 20131029
  34. FOSAPREPITANT DIMEGLUMINE [Suspect]
     Active Substance: FOSAPREPITANT DIMEGLUMINE
     Dosage: 150 MG, QD
     Route: 041
     Dates: start: 20131126, end: 20131126
  35. IRINOTECAN HYDROCHLORIDE. [Suspect]
     Active Substance: IRINOTECAN HYDROCHLORIDE
     Dosage: 55 MG, QD
     Route: 042
     Dates: start: 20131226, end: 20131226
  36. ALOXI [Concomitant]
     Active Substance: PALONOSETRON HYDROCHLORIDE
     Dosage: UNK
     Dates: start: 20140220, end: 20140220
  37. ALOXI [Concomitant]
     Active Substance: PALONOSETRON HYDROCHLORIDE
     Dosage: UNK
     Dates: start: 20140327, end: 20140327
  38. LASIX [Concomitant]
     Active Substance: FUROSEMIDE
     Dosage: UNK
     Dates: start: 20131226, end: 20131228
  39. BRIPLATIN [Suspect]
     Active Substance: CISPLATIN
     Dosage: 55 MG, QD
     Route: 042
     Dates: start: 20131226, end: 20131226
  40. IRINOTECAN HYDROCHLORIDE. [Suspect]
     Active Substance: IRINOTECAN HYDROCHLORIDE
     Dosage: 55 MG, QD
     Route: 042
     Dates: start: 20140123, end: 20140123
  41. IRINOTECAN HYDROCHLORIDE. [Suspect]
     Active Substance: IRINOTECAN HYDROCHLORIDE
     Dosage: 55 MG, QD
     Route: 042
     Dates: start: 20140424, end: 20140424
  42. DEXART [Concomitant]
     Active Substance: DEXAMETHASONE SODIUM PHOSPHATE
     Dosage: 8.25 MG, UNK
     Dates: start: 20131029, end: 20131029
  43. DEXART [Concomitant]
     Active Substance: DEXAMETHASONE SODIUM PHOSPHATE
     Dosage: 8.25 MG, UNK
     Dates: start: 20140424, end: 20140424
  44. DEXART [Concomitant]
     Active Substance: DEXAMETHASONE SODIUM PHOSPHATE
     Dosage: 3.30 MG, UNK
     Dates: start: 20140328, end: 20140329
  45. DEXART [Concomitant]
     Active Substance: DEXAMETHASONE SODIUM PHOSPHATE
     Dosage: 9.90 MG, UNK
     Dates: start: 20131226, end: 20131226
  46. FOSAPREPITANT DIMEGLUMINE [Suspect]
     Active Substance: FOSAPREPITANT DIMEGLUMINE
     Indication: PROPHYLAXIS OF NAUSEA AND VOMITING
     Dosage: 150 MG, QD
     Route: 041
     Dates: start: 20130924, end: 20130924
  47. FOSAPREPITANT DIMEGLUMINE [Suspect]
     Active Substance: FOSAPREPITANT DIMEGLUMINE
     Dosage: 150 MG, QD
     Route: 041
     Dates: start: 20140424, end: 20140424
  48. BRIPLATIN [Suspect]
     Active Substance: CISPLATIN
     Dosage: 55 MG, QD
     Route: 042
     Dates: start: 20140123, end: 20140123
  49. BRIPLATIN [Suspect]
     Active Substance: CISPLATIN
     Dosage: 55 MG, QD
     Route: 042
     Dates: start: 20140424, end: 20140424
  50. IRINOTECAN HYDROCHLORIDE. [Suspect]
     Active Substance: IRINOTECAN HYDROCHLORIDE
     Dosage: 55 MG, QD
     Route: 042
     Dates: start: 20140220, end: 20140220
  51. IRINOTECAN HYDROCHLORIDE. [Suspect]
     Active Substance: IRINOTECAN HYDROCHLORIDE
     Dosage: 55 MG, QD
     Route: 042
     Dates: start: 20140327, end: 20140327
  52. DEXART [Concomitant]
     Active Substance: DEXAMETHASONE SODIUM PHOSPHATE
     Dosage: 3.30 MG, UNK
     Dates: start: 20131030, end: 20131031
  53. DEXART [Concomitant]
     Active Substance: DEXAMETHASONE SODIUM PHOSPHATE
     Dosage: 3.30 MG, UNK
     Dates: start: 20140425, end: 20140426
  54. DEXART [Concomitant]
     Active Substance: DEXAMETHASONE SODIUM PHOSPHATE
     Dosage: 6.60 MG, UNK
     Dates: start: 20130926, end: 20130926
  55. LASIX [Concomitant]
     Active Substance: FUROSEMIDE
     Dosage: UNK
     Dates: start: 20130924, end: 20130926
  56. LASIX [Concomitant]
     Active Substance: FUROSEMIDE
     Dosage: UNK
     Dates: start: 20140123, end: 20140125
  57. LASIX [Concomitant]
     Active Substance: FUROSEMIDE
     Dosage: UNK
     Dates: start: 20140424, end: 20140426

REACTIONS (5)
  - Decreased appetite [Recovered/Resolved]
  - Anaemia [Recovered/Resolved]
  - Agranulocytosis [Recovered/Resolved]
  - Hepatic function abnormal [Recovered/Resolved]
  - White blood cell count decreased [Recovered/Resolved]

NARRATIVE: CASE EVENT DATE: 20130925
